FAERS Safety Report 17734807 (Version 1)
Quarter: 2020Q2

REPORT INFORMATION
  Report Type: Other
  Country: GB (occurrence: GB)
  Receive Date: 20200501
  Receipt Date: 20200501
  Transmission Date: 20200714
  Serious: Yes (Hospitalization, Other)
  Sender: FDA-Public Use
  Company Number: GB-ASPEN-GLO2020GB004644

PATIENT
  Age: 61 Year
  Sex: Male
  Weight: 83.75 kg

DRUGS (11)
  1. COTRIMOXAZOLE [Concomitant]
     Active Substance: SULFAMETHOXAZOLE\TRIMETHOPRIM
     Indication: INFECTION PROPHYLAXIS
     Dosage: ONE EACH DAY ON MON,WED,FRI (960MG)
     Route: 048
  2. BACTROBAN [Concomitant]
     Active Substance: MUPIROCIN\MUPIROCIN CALCIUM
     Indication: PROPHYLAXIS
     Dosage: AS REQUIRED
     Route: 045
  3. LANSOPRAZOLE. [Concomitant]
     Active Substance: LANSOPRAZOLE
     Indication: PROPHYLAXIS
     Dosage: 30 MG, QD
     Route: 048
     Dates: start: 20190802
  4. DEXAMETHASONE. [Suspect]
     Active Substance: DEXAMETHASONE
     Indication: PLASMA CELL MYELOMA
     Dosage: 1 IN 1 WEEK
     Route: 048
  5. FUROSEMIDE. [Concomitant]
     Active Substance: FUROSEMIDE
     Indication: ATRIAL FLUTTER
     Route: 065
  6. NASEPTIN [Concomitant]
     Active Substance: CHLORHEXIDINE HYDROCHLORIDE\NEOMYCIN SULFATE
     Indication: PROPHYLAXIS
     Dosage: AS REQUIRED
     Route: 061
  7. POMALIDOMIDE [Suspect]
     Active Substance: POMALIDOMIDE
     Indication: PRODUCT USED FOR UNKNOWN INDICATION
     Route: 065
  8. VENETOCLAX. [Suspect]
     Active Substance: VENETOCLAX
     Indication: PLASMA CELL MYELOMA
     Dosage: DAYS 1-21 OF 28 DAY CYCLE (4MG)DAYS 1-21 OF 28 DAY CYCLE (3MG)
     Route: 048
  9. ACICLOVIR [Concomitant]
     Active Substance: ACYCLOVIR
     Indication: ANTIVIRAL PROPHYLAXIS
     Dosage: 200 MG, EVERY 3 DAYS
     Route: 048
     Dates: start: 20191113
  10. VERAPAMIL [Concomitant]
     Active Substance: VERAPAMIL HYDROCHLORIDE
     Indication: ATRIAL FLUTTER
     Route: 065
  11. SALBUTAMOL [Concomitant]
     Active Substance: ALBUTEROL
     Indication: ASTHMA
     Route: 055

REACTIONS (5)
  - Lower respiratory tract infection [Not Recovered/Not Resolved]
  - Chronic obstructive pulmonary disease [Not Recovered/Not Resolved]
  - Malaise [Not Recovered/Not Resolved]
  - Dyspnoea [Not Recovered/Not Resolved]
  - Productive cough [Not Recovered/Not Resolved]

NARRATIVE: CASE EVENT DATE: 20200115
